FAERS Safety Report 19888593 (Version 1)
Quarter: 2021Q3

REPORT INFORMATION
  Report Type: Spontaneous
  Country: US (occurrence: US)
  Receive Date: 20210927
  Receipt Date: 20210927
  Transmission Date: 20211014
  Serious: No
  Sender: FDA-Public Use
  Company Number: None

PATIENT
  Sex: Female
  Weight: 61.65 kg

DRUGS (3)
  1. RECLAST [Concomitant]
     Active Substance: ZOLEDRONIC ACID
  2. PROLIA [Suspect]
     Active Substance: DENOSUMAB
  3. CALCIUM + VITAMIN D [Concomitant]
     Active Substance: CALCIUM\VITAMIN D

REACTIONS (1)
  - Arthralgia [None]
